APPROVED DRUG PRODUCT: BEROCCA PN
Active Ingredient: ASCORBIC ACID; BIOTIN; CYANOCOBALAMIN; DEXPANTHENOL; ERGOCALCIFEROL; FOLIC ACID; NIACINAMIDE; PYRIDOXINE HYDROCHLORIDE; RIBOFLAVIN 5'-PHOSPHATE SODIUM; THIAMINE HYDROCHLORIDE; VITAMIN A PALMITATE; VITAMIN E
Strength: 50MG/ML;0.03MG/ML;0.0025MG/ML;7.5MG/ML;100 IU/ML;0.2MG/ML;20MG/ML;2MG/ML;1.8MG/ML;1.5MG/ML;1,650 IU/ML;5 IU/ML
Dosage Form/Route: INJECTABLE;INJECTION
Application: N006071 | Product #003
Applicant: HOFFMANN LA ROCHE INC
Approved: Oct 10, 1985 | RLD: No | RS: No | Type: DISCN